FAERS Safety Report 5080630-7 (Version None)
Quarter: 2006Q3

REPORT INFORMATION
  Report Type: 
  Country: None (occurrence: None)
  Receive Date: 20060815
  Receipt Date: 20050921
  Transmission Date: 20061208
  Serious: Yes (Other)
  Sender: FDA-Public Use
  Company Number: DE-BOEHRINGER INGELHEIM PHARMACEUTICALS, INC.-2005-DE-03864GD

PATIENT
  Sex: Male

DRUGS (3)
  1. NEVIRAPINE [Suspect]
     Indication: HIV INFECTION
  2. LAMIVUDINE [Suspect]
     Indication: HIV INFECTION
  3. TENOFOVIR [Suspect]
     Indication: HIV INFECTION

REACTIONS (3)
  - DRUG INEFFECTIVE [None]
  - DRUG RESISTANCE [None]
  - VIRAL MUTATION IDENTIFIED [None]
